FAERS Safety Report 9143317 (Version 1)
Quarter: 2013Q1

REPORT INFORMATION
  Report Type: Spontaneous
  Country: US (occurrence: US)
  Receive Date: 20130306
  Receipt Date: 20130306
  Transmission Date: 20140127
  Serious: Yes (Hospitalization)
  Sender: FDA-Public Use
  Company Number: US-NOVEN-13US006331

PATIENT
  Age: 39 Year
  Sex: Female

DRUGS (3)
  1. FENTANYL [Suspect]
     Indication: BACK PAIN
     Dosage: 25 MCG/HR EVERY 72 HRS
     Route: 062
     Dates: start: 201210, end: 2013
  2. FENTANYL [Suspect]
     Dosage: 75 MCG/HR EVERY 48 HRS
     Route: 062
     Dates: start: 2013
  3. PERCOCET                           /00446701/ [Concomitant]
     Indication: PAIN

REACTIONS (4)
  - Blood cortisol decreased [Not Recovered/Not Resolved]
  - Application site urticaria [Recovering/Resolving]
  - Application site rash [Recovering/Resolving]
  - Inadequate analgesia [Recovered/Resolved]
